FAERS Safety Report 18170792 (Version 1)
Quarter: 2020Q3

REPORT INFORMATION
  Report Type: Spontaneous
  Country: DE (occurrence: DE)
  Receive Date: 20200819
  Receipt Date: 20200819
  Transmission Date: 20201103
  Serious: Yes (Hospitalization, Other)
  Sender: FDA-Public Use
  Company Number: DE-MYLANLABS-2020M1071280

PATIENT
  Age: 80 Year
  Sex: Male
  Weight: 74 kg

DRUGS (15)
  1. ROSUVASTATIN. [Concomitant]
     Active Substance: ROSUVASTATIN
     Dosage: 20 MG, 0?0?1?0, TABLETTEN
     Route: 048
  2. PANTOPRAZOL                        /01263201/ [Concomitant]
     Active Substance: PANTOPRAZOLE
     Dosage: 40 MG, 1?0?0?0, TABLETTEN
     Route: 048
  3. TAMSULOSIN [Concomitant]
     Active Substance: TAMSULOSIN
     Dosage: 0.4 MG, 0?0?1?0, RETARD?TABLETTEN
     Route: 048
  4. ZOPICLON [Concomitant]
     Active Substance: ZOPICLONE
     Dosage: 7.5 MG, 0?0?1?0, TABLETTEN
     Route: 048
  5. KALIUMCITRAT [Concomitant]
     Active Substance: POTASSIUM CITRATE
     Dosage: 2157.3 MG, 1?0?0?0, BEUTEL
     Route: 048
  6. APIXABAN [Concomitant]
     Active Substance: APIXABAN
     Dosage: 2.5 MG, 1?0?1?0, TABLETTEN
     Route: 048
  7. FORMODUAL [Concomitant]
     Active Substance: BECLOMETHASONE DIPROPIONATE\FORMOTEROL FUMARATE
     Dosage: 100|6 ?G, BEDARF, DOSIERAEROSOL
     Route: 055
  8. METOPROLOL. [Concomitant]
     Active Substance: METOPROLOL
     Dosage: 95 MG, 1?0?0.5?0, RETARD?TABLETTEN
     Route: 048
  9. GABAPENTIN. [Concomitant]
     Active Substance: GABAPENTIN
     Dosage: 300 MG, 1?0?1?0, KAPSELN
     Route: 048
  10. METAMIZOL                          /06276701/ [Suspect]
     Active Substance: METAMIZOLE
     Indication: PRODUCT USED FOR UNKNOWN INDICATION
     Dosage: 500 MG, 1?1?1?1, TABLETTEN
     Route: 048
  11. INSULIN ASPART [Concomitant]
     Active Substance: INSULIN ASPART
     Dosage: 300 E/3ML, 6?2?4?0, FERTIGSPRITZEN
     Route: 058
  12. INSULIN GLARGINE [Concomitant]
     Active Substance: INSULIN GLARGINE
     Dosage: 450 E/1.5ML, 0?0?16?0, FERTIGSPRITZEN
     Route: 058
  13. SPIOLTO RESPIMAT [Concomitant]
     Active Substance: OLODATEROL HYDROCHLORIDE\TIOTROPIUM BROMIDE MONOHYDRATE
     Dosage: 2.5|2.5 ?G, 2?0?0?0, DOSIERAEROSOL
     Route: 055
  14. TORASEMIDE [Suspect]
     Active Substance: TORSEMIDE
     Indication: PRODUCT USED FOR UNKNOWN INDICATION
     Dosage: 20 MG, 1?0?0.5?0, TABLETTEN
     Route: 048
  15. ENTRESTO [Suspect]
     Active Substance: SACUBITRIL\VALSARTAN
     Indication: PRODUCT USED FOR UNKNOWN INDICATION
     Dosage: 24.3|25.7 MG, 1?0?1?0, TABLETTEN
     Route: 048

REACTIONS (7)
  - Pyrexia [Unknown]
  - Oedema peripheral [Unknown]
  - Dyspnoea [Unknown]
  - Productive cough [Unknown]
  - Localised infection [Unknown]
  - Cough [Unknown]
  - Renal impairment [Unknown]
